FAERS Safety Report 5240895-5 (Version None)
Quarter: 2007Q1

REPORT INFORMATION
  Report Type: 
  Country: None (occurrence: None)
  Receive Date: 20061201
  Receipt Date: 20060906
  Transmission Date: 20070707
  Serious: No
  Sender: FDA-Public Use
  Company Number: 2006PV020805

PATIENT
  Age: 55 Year
  Sex: Male
  Weight: 100.6985 kg

DRUGS (4)
  1. BYETTA [Suspect]
     Indication: DIABETES MELLITUS NON-INSULIN-DEPENDENT
     Dosage: SEE IMAGE
     Route: 058
     Dates: start: 20060601, end: 20060701
  2. BYETTA [Suspect]
     Indication: DIABETES MELLITUS NON-INSULIN-DEPENDENT
     Dosage: SEE IMAGE
     Route: 058
     Dates: start: 20060701, end: 20060905
  3. BYETTA [Suspect]
     Indication: DIABETES MELLITUS NON-INSULIN-DEPENDENT
     Dosage: SEE IMAGE
     Route: 058
     Dates: start: 20060905
  4. METFORMIN HCL [Concomitant]

REACTIONS (7)
  - BLOOD GLUCOSE DECREASED [None]
  - DYSPEPSIA [None]
  - EARLY SATIETY [None]
  - FATIGUE [None]
  - LETHARGY [None]
  - NAUSEA [None]
  - WEIGHT DECREASED [None]
